FAERS Safety Report 5205061-8 (Version None)
Quarter: 2007Q1

REPORT INFORMATION
  Report Type: 
  Country: None (occurrence: None)
  Receive Date: 20070110
  Receipt Date: 20061017
  Transmission Date: 20070707
  Serious: No
  Sender: FDA-Public Use
  Company Number: US-BRISTOL-MYERS SQUIBB COMPANY-13543947

PATIENT
  Age: 3 Decade
  Sex: Female
  Weight: 63 kg

DRUGS (1)
  1. ABILIFY [Suspect]
     Indication: BIPOLAR DISORDER
     Dosage: DOSE WAS TITRATED UP TO 10MG OR 15MG. IT'S BEEN REDUCED BY 5MG; DURATION: 1 OR 2 MONTHS

REACTIONS (1)
  - TARDIVE DYSKINESIA [None]
